FAERS Safety Report 9881675 (Version 2)
Quarter: 2014Q1

REPORT INFORMATION
  Report Type: Spontaneous
  Country: US (occurrence: US)
  Receive Date: 20140207
  Receipt Date: 20140207
  Transmission Date: 20141002
  Serious: Yes (Hospitalization, Other)
  Sender: FDA-Public Use
  Company Number: US-CELGENEUS-163-POMAL-13113820

PATIENT
  Age: 73 Year
  Sex: Female

DRUGS (2)
  1. POMALYST [Suspect]
     Indication: PLASMA CELL MYELOMA
     Dosage: 4 MILLIGRAM
     Route: 048
     Dates: start: 20130916
  2. POMALYST [Suspect]
     Dosage: 4 MILLIGRAM
     Route: 048

REACTIONS (2)
  - Pulmonary haemorrhage [Unknown]
  - Deep vein thrombosis [Recovering/Resolving]
